FAERS Safety Report 5033536-3 (Version None)
Quarter: 2006Q2

REPORT INFORMATION
  Report Type: 
  Country: None (occurrence: None)
  Receive Date: 20060518
  Receipt Date: 20051102
  Transmission Date: 20061013
  Serious: Yes (Other)
  Sender: FDA-Public Use
  Company Number: 2005003675

PATIENT
  Age: 27 Year
  Sex: Female
  Weight: 138.8007 kg

DRUGS (3)
  1. DEPO-PROVERA [Suspect]
     Indication: ILL-DEFINED DISORDER
     Dosage: SEE IMAGE
     Route: 030
     Dates: start: 20031212, end: 20031212
  2. DEPO-PROVERA [Suspect]
     Indication: ILL-DEFINED DISORDER
     Dosage: SEE IMAGE
     Route: 030
     Dates: start: 20051013, end: 20051013
  3. ZOLOFT [Concomitant]

REACTIONS (4)
  - HOT FLUSH [None]
  - LOSS OF LIBIDO [None]
  - METRORRHAGIA [None]
  - WEIGHT INCREASED [None]
